FAERS Safety Report 9061812 (Version 3)
Quarter: 2013Q2

REPORT INFORMATION
  Report Type: Report from Study
  Country: JP (occurrence: JP)
  Receive Date: 20130128
  Receipt Date: 20130415
  Transmission Date: 20140414
  Serious: Yes (Other)
  Sender: FDA-Public Use
  Company Number: JP-ROCHE-1183870

PATIENT
  Age: 35 Year
  Sex: Male
  Weight: 67 kg

DRUGS (10)
  1. METHOXY POLYETHYLENE GLYCOL-EPOETIN BETA [Suspect]
     Indication: NEPHROGENIC ANAEMIA
     Route: 042
     Dates: start: 20120424, end: 20120626
  2. OLMETEC [Concomitant]
     Route: 048
     Dates: start: 20110118
  3. TANATRIL [Concomitant]
     Route: 048
     Dates: start: 20110127
  4. CATAPRES [Concomitant]
     Route: 048
     Dates: start: 20110113
  5. CARDENALIN [Concomitant]
     Route: 048
     Dates: start: 20110113
  6. ADALAT [Concomitant]
     Route: 048
     Dates: start: 20110113
  7. CALTAN [Concomitant]
     Route: 048
     Dates: start: 20110416
  8. BAYASPIRIN [Concomitant]
     Route: 048
     Dates: start: 20110113
  9. NEXIUM [Concomitant]
     Route: 048
     Dates: start: 20110929
  10. LASIX [Concomitant]
     Route: 048
     Dates: start: 20110113

REACTIONS (1)
  - Anaemia [Recovered/Resolved]
